FAERS Safety Report 15293111 (Version 2)
Quarter: 2018Q3

REPORT INFORMATION
  Report Type: Report from Study
  Country: BR (occurrence: BR)
  Receive Date: 20180820
  Receipt Date: 20180827
  Transmission Date: 20181010
  Serious: Yes (Life-Threatening, Hospitalization, Other)
  Sender: FDA-Public Use
  Company Number: BR-UCBSA-2018035842

PATIENT
  Age: 0 Year
  Sex: Male
  Weight: 6 kg

DRUGS (7)
  1. RANITIDINE. [Concomitant]
     Active Substance: RANITIDINE
     Indication: PROPHYLAXIS
     Dosage: UNK
  2. LEVETIRACETAM. [Suspect]
     Active Substance: LEVETIRACETAM
     Indication: SEIZURE
     Dosage: UNK UNK, 2X/DAY (BID)
     Dates: start: 20180110, end: 201803
  3. VIGABATRIN. [Concomitant]
     Active Substance: VIGABATRIN
     Indication: SEIZURE
     Dosage: 500 MG, 3X/DAY (TID)
  4. TOPIRAMATE. [Concomitant]
     Active Substance: TOPIRAMATE
     Indication: SEIZURE
     Dosage: UNK
  5. PHENOBARBITAL. [Concomitant]
     Active Substance: PHENOBARBITAL
     Indication: SEIZURE
  6. CLOBAZAM [Concomitant]
     Active Substance: CLOBAZAM
     Indication: SEIZURE
     Dosage: 10 MG, 3X/DAY (TID)
  7. LEVETIRACETAM. [Suspect]
     Active Substance: LEVETIRACETAM
     Dosage: 1 ML, 3X/DAY (TID)
     Dates: start: 201803

REACTIONS (9)
  - Urinary tract infection [Recovered/Resolved]
  - Tracheal injury [Recovered/Resolved]
  - Septic shock [Unknown]
  - Sepsis [Recovered/Resolved]
  - Intraventricular haemorrhage neonatal [Unknown]
  - Seizure [Recovered/Resolved]
  - Gastrooesophageal reflux disease [Unknown]
  - Off label use [Unknown]
  - Drug ineffective [Unknown]

NARRATIVE: CASE EVENT DATE: 2018
